FAERS Safety Report 7896640-8 (Version None)
Quarter: 2011Q4

REPORT INFORMATION
  Report Type: 
  Country: None (occurrence: None)
  Receive Date: 20111107
  Receipt Date: 20111028
  Transmission Date: 20120403
  Serious: No
  Sender: FDA-Public Use
  Company Number: US-BIOGENIDEC-2010BI007488

PATIENT
  Sex: Female

DRUGS (5)
  1. REBIF [Concomitant]
     Indication: MULTIPLE SCLEROSIS
  2. LEVOXYL [Concomitant]
     Indication: HYPOTHYROIDISM
  3. CLONAZEPAM [Concomitant]
     Indication: INSOMNIA
  4. TYSABRI [Suspect]
     Indication: MULTIPLE SCLEROSIS
     Route: 042
     Dates: start: 20070625
  5. ENABLEX [Concomitant]
     Indication: STRESS URINARY INCONTINENCE

REACTIONS (6)
  - HYPOTHYROIDISM [None]
  - VISUAL IMPAIRMENT [None]
  - MUSCULAR WEAKNESS [None]
  - BLINDNESS UNILATERAL [None]
  - MEMORY IMPAIRMENT [None]
  - INJECTION SITE INFLAMMATION [None]
